FAERS Safety Report 9523116 (Version 1)
Quarter: 2013Q3

REPORT INFORMATION
  Report Type: Spontaneous
  Country: IT (occurrence: IT)
  Receive Date: 20130913
  Receipt Date: 20130913
  Transmission Date: 20140515
  Serious: Yes (Other)
  Sender: FDA-Public Use
  Company Number: IT-BRISTOL-MYERS SQUIBB COMPANY-19360155

PATIENT
  Age: 66 Year
  Sex: Female

DRUGS (3)
  1. ERBITUX [Suspect]
     Indication: LARYNGEAL CANCER
     Route: 042
     Dates: start: 20130104, end: 20130321
  2. CISPLATIN FOR INJ [Suspect]
     Indication: LARYNGEAL CANCER
     Route: 042
     Dates: start: 20130110
  3. 5-FLUOROURACIL [Suspect]
     Indication: LARYNGEAL CANCER
     Route: 042
     Dates: start: 20130110

REACTIONS (2)
  - Anaemia [Recovering/Resolving]
  - Neutropenia [Recovering/Resolving]
